FAERS Safety Report 12550590 (Version 3)
Quarter: 2016Q3

REPORT INFORMATION
  Report Type: Spontaneous
  Country: US (occurrence: US)
  Receive Date: 20160712
  Receipt Date: 20160829
  Transmission Date: 20161109
  Serious: Yes (Hospitalization)
  Sender: FDA-Public Use
  Company Number: US-PFIZER INC-2016339807

PATIENT
  Age: 75 Year
  Sex: Male
  Weight: 109 kg

DRUGS (10)
  1. LOVAZA [Concomitant]
     Active Substance: OMEGA-3-ACID ETHYL ESTERS
     Indication: BLOOD TRIGLYCERIDES
     Dosage: 2 G, 2X/DAY
     Dates: start: 2008
  2. TRIAMTERENE AND HYDROCHLOROTHIAZIDE [Concomitant]
     Active Substance: HYDROCHLOROTHIAZIDE\TRIAMTERENE
     Indication: CARDIAC DISORDER
     Dosage: 37.5/25 MG, DAILY
     Route: 048
     Dates: start: 1995
  3. QUINAPRIL. [Concomitant]
     Active Substance: QUINAPRIL
     Indication: CARDIAC DISORDER
     Dosage: 20 MG, 2X/DAY
     Route: 048
     Dates: start: 1995
  4. VYTORIN [Concomitant]
     Active Substance: EZETIMIBE\SIMVASTATIN
     Indication: BLOOD CHOLESTEROL
     Dosage: 10/40 MG, DAILY
     Route: 048
     Dates: start: 2005
  5. VITAMIN D2 [Concomitant]
     Active Substance: ERGOCALCIFEROL
     Indication: VITAMIN D DEFICIENCY
     Dosage: 2 DF, WEEKLY
     Route: 048
     Dates: start: 2010
  6. ALLOPURINOL. [Concomitant]
     Active Substance: ALLOPURINOL
     Indication: CARDIAC DISORDER
     Dosage: 200 MG, 1X/DAY
     Route: 048
     Dates: start: 1995
  7. LYRICA [Suspect]
     Active Substance: PREGABALIN
     Indication: SPINAL COLUMN STENOSIS
     Dosage: 150 MG, 2X/DAY (ONE TABLET IN THE MORNING AND ONE TABLET IN EVENING)
     Route: 048
     Dates: start: 2016
  8. LYRICA [Suspect]
     Active Substance: PREGABALIN
     Dosage: 150 MG, 2X/DAY
     Dates: start: 201603
  9. METOPROLOL ER [Concomitant]
     Active Substance: METOPROLOL SUCCINATE
     Indication: CARDIAC DISORDER
     Dosage: 100 MG, 1X/DAY
     Route: 048
     Dates: start: 1995
  10. ASPIRIN. [Concomitant]
     Active Substance: ASPIRIN
     Indication: BLOOD DISORDER
     Dosage: 325 MG, DAILY
     Route: 048
     Dates: start: 1995

REACTIONS (8)
  - Pain in extremity [Not Recovered/Not Resolved]
  - Musculoskeletal stiffness [Unknown]
  - Pyrexia [Recovered/Resolved]
  - Infection [Recovered/Resolved]
  - Condition aggravated [Not Recovered/Not Resolved]
  - Skin discolouration [Recovered/Resolved]
  - Blood blister [Recovered/Resolved]
  - Drug ineffective [Not Recovered/Not Resolved]

NARRATIVE: CASE EVENT DATE: 20160618
